FAERS Safety Report 8387993-5 (Version None)
Quarter: 2012Q2

REPORT INFORMATION
  Report Type: 
  Country: None (occurrence: None)
  Receive Date: 20120525
  Receipt Date: 20120521
  Transmission Date: 20120825
  Serious: Yes (Other)
  Sender: FDA-Public Use
  Company Number: PHHY2012US044483

PATIENT

DRUGS (14)
  1. MORPHINE [Suspect]
     Route: 064
  2. CARVEDILOL [Suspect]
     Dosage: MATERNAL DOSE 6.25 MG, BID
  3. HYDRALAZINE HCL [Suspect]
     Dosage: MATERNAL DOSE 25 MG/DAY
  4. ACETYLSALICYLIC ACID SRT [Suspect]
     Dosage: MATERNAL DOSE 325 MG
     Route: 064
  5. CARVEDILOL [Suspect]
     Dosage: MATERNAL DOSE 12.5 MG
     Route: 064
  6. CARVEDILOL [Suspect]
     Dosage: MATERNAL DOSE 3.125 MG, BID
  7. METOPROLOL TARTRATE [Suspect]
     Dosage: MATERNAL DOSE 1 MG
     Route: 064
  8. FERROUS SULFATE TAB [Suspect]
     Dosage: MATERNAL DOSE 325 MG
     Route: 064
  9. HYDRALAZINE HCL [Suspect]
     Dosage: MATERNAL DOSE 1 MG
     Route: 064
  10. NITRATES [Suspect]
     Route: 064
  11. SIMVASTATIN [Suspect]
     Dosage: MATERNAL DOSE 20 MG
     Route: 064
  12. CLOPIDOGREL [Suspect]
     Dosage: MATERNAL DOSE 75 MG
     Route: 064
  13. HEPARIN [Suspect]
     Route: 064
  14. VITAMIN TAB [Suspect]
     Route: 064

REACTIONS (2)
  - FOETAL EXPOSURE DURING PREGNANCY [None]
  - PREMATURE BABY [None]
